FAERS Safety Report 5160926-0 (Version None)
Quarter: 2006Q4

REPORT INFORMATION
  Report Type: 
  Country: None (occurrence: None)
  Receive Date: 20061130
  Receipt Date: 20051024
  Transmission Date: 20070319
  Serious: No
  Sender: FDA-Public Use
  Company Number: US-BRISTOL-MYERS SQUIBB COMPANY-13162235

PATIENT

DRUGS (2)
  1. COAPROVEL TABS [Suspect]
     Route: 048
  2. GARLIC [Concomitant]
     Route: 048

REACTIONS (1)
  - HAIR COLOUR CHANGES [None]
